FAERS Safety Report 9244347 (Version 1)
Quarter: 2013Q1

REPORT INFORMATION
  Report Type: Spontaneous
  Country: US (occurrence: None)
  Receive Date: 20121130
  Receipt Date: 20121130
  Transmission Date: 20140127
  Serious: No
  Sender: FDA-Public Use
  Company Number: US201207006118

PATIENT
  Sex: Female
  Weight: 104.3 kg

DRUGS (6)
  1. BYETTA (EXENATIDE) PEN, DISPOSABLE [Suspect]
     Indication: TYPE 2 DIABETES MELLITUS
     Dates: start: 20120509, end: 20120715
  2. JANUVIA (SITAGLIPTIN PHOSPHATE) [Concomitant]
  3. METFORMIN (METFORMIN) [Suspect]
  4. LEXAPRO (ESCITALOPRAM OXALATE) [Concomitant]
  5. LISINOPRIL [Concomitant]
  6. ASA (ACETYLSALICYLIC ACID) [Concomitant]

REACTIONS (3)
  - Renal failure [None]
  - Dehydration [None]
  - Pyrexia [None]
